FAERS Safety Report 8311967-3 (Version None)
Quarter: 2012Q2

REPORT INFORMATION
  Report Type: 
  Country: None (occurrence: None)
  Receive Date: 20120425
  Receipt Date: 20120418
  Transmission Date: 20120825
  Serious: Yes (Other)
  Sender: FDA-Public Use
  Company Number: US-BAYER-2012-039136

PATIENT
  Age: 84 Year
  Sex: Female
  Weight: 77.098 kg

DRUGS (7)
  1. ASPIRIN [Concomitant]
  2. CLONIDINE [Concomitant]
  3. ALEVE (CAPLET) [Suspect]
     Indication: PRODUCT USED FOR UNKNOWN INDICATION
     Route: 048
  4. METFORMIN HCL [Concomitant]
  5. ATIVAN [Concomitant]
  6. PRAVASTATIN [Concomitant]
  7. PULMICORT [Concomitant]

REACTIONS (1)
  - BLOOD PRESSURE SYSTOLIC INCREASED [None]
